FAERS Safety Report 13372773 (Version 2)
Quarter: 2017Q3

REPORT INFORMATION
  Report Type: Report from Study
  Country: JP (occurrence: JP)
  Receive Date: 20170327
  Receipt Date: 20170716
  Transmission Date: 20171127
  Serious: No
  Sender: FDA-Public Use
  Company Number: JP-AMGEN-JPNCT2017046539

PATIENT
  Age: 51 Year
  Sex: Male
  Weight: 67 kg

DRUGS (50)
  1. ROMIPLOSTIM [Suspect]
     Active Substance: ROMIPLOSTIM
     Dosage: 3 MUG/KG, Q2WK
     Route: 058
     Dates: start: 20130808, end: 20130822
  2. ROMIPLOSTIM [Suspect]
     Active Substance: ROMIPLOSTIM
     Dosage: 2 MUG/KG, QD
     Route: 058
     Dates: start: 20130830, end: 20130830
  3. ROMIPLOSTIM [Suspect]
     Active Substance: ROMIPLOSTIM
     Dosage: 4 MUG/KG, QWK
     Route: 058
     Dates: start: 20131128, end: 20131205
  4. ROMIPLOSTIM [Suspect]
     Active Substance: ROMIPLOSTIM
     Dosage: 3 MUG/KG, QD
     Route: 058
     Dates: start: 20131212, end: 20131212
  5. ROMIPLOSTIM [Suspect]
     Active Substance: ROMIPLOSTIM
     Dosage: 6 MUG/KG, QWK
     Route: 058
     Dates: start: 20140403, end: 20140410
  6. ROMIPLOSTIM [Suspect]
     Active Substance: ROMIPLOSTIM
     Dosage: 9 MUG/KG, QWK
     Route: 058
     Dates: start: 20140515, end: 20140521
  7. PREDONINE [Concomitant]
     Active Substance: PREDNISOLONE
     Dosage: 10 MG, UNK
     Route: 048
     Dates: start: 20131213, end: 20140130
  8. PREDONINE [Concomitant]
     Active Substance: PREDNISOLONE
     Dosage: 9 MG, UNK
     Route: 048
     Dates: start: 20140131, end: 20140501
  9. PREDONINE [Concomitant]
     Active Substance: PREDNISOLONE
     Dosage: 30 MG, UNK
     Route: 048
     Dates: start: 20140830, end: 20140904
  10. PREDONINE [Concomitant]
     Active Substance: PREDNISOLONE
     Dosage: 25 MG, UNK
     Route: 048
     Dates: start: 20140905, end: 20140925
  11. DECADRON [Concomitant]
     Active Substance: DEXAMETHASONE
     Dosage: 3 MG, UNK
     Route: 048
     Dates: start: 20141004, end: 20141009
  12. DECADRON [Concomitant]
     Active Substance: DEXAMETHASONE
     Dosage: 4 MG, UNK
     Route: 048
     Dates: start: 20141010
  13. ROMIPLOSTIM [Suspect]
     Active Substance: ROMIPLOSTIM
     Dosage: 4 MUG/KG, QWK
     Route: 058
     Dates: start: 20131107, end: 20131114
  14. ROMIPLOSTIM [Suspect]
     Active Substance: ROMIPLOSTIM
     Dosage: 3 MUG/KG, QD
     Route: 058
     Dates: start: 20131121, end: 20131121
  15. ROMIPLOSTIM [Suspect]
     Active Substance: ROMIPLOSTIM
     Dosage: 7 MUG/KG, QD
     Route: 058
     Dates: start: 20140226, end: 20140226
  16. ROMIPLOSTIM [Suspect]
     Active Substance: ROMIPLOSTIM
     Dosage: 6 MUG/KG, QWK
     Route: 058
     Dates: start: 20140313, end: 20140320
  17. PREDONINE [Concomitant]
     Active Substance: PREDNISOLONE
     Dosage: 22.5 MG, UNK
     Route: 048
     Dates: start: 20130719, end: 20130905
  18. PREDONINE [Concomitant]
     Active Substance: PREDNISOLONE
     Dosage: 12.5 MG, UNK
     Route: 048
     Dates: start: 20131101, end: 20131121
  19. CEPHARANTHINE [Concomitant]
     Active Substance: CEPHARANTHINE
     Indication: IMMUNE THROMBOCYTOPENIC PURPURA
     Dosage: 40 MG, UNK
     Route: 048
     Dates: start: 20121019
  20. NESINA [Concomitant]
     Active Substance: ALOGLIPTIN BENZOATE
     Indication: DIABETES MELLITUS
     Dosage: UNK
     Route: 048
  21. ROMIPLOSTIM [Suspect]
     Active Substance: ROMIPLOSTIM
     Dosage: 4 MUG/KG, QWK
     Route: 058
     Dates: start: 20131219, end: 20131226
  22. ROMIPLOSTIM [Suspect]
     Active Substance: ROMIPLOSTIM
     Dosage: 5 MUG/KG, QWK
     Route: 058
     Dates: start: 20140327, end: 20140327
  23. PREDONINE [Concomitant]
     Active Substance: PREDNISOLONE
     Dosage: 15 MG, UNK
     Route: 048
     Dates: start: 20131011, end: 20131031
  24. PREDONINE [Concomitant]
     Active Substance: PREDNISOLONE
     Dosage: 20 MG, UNK
     Route: 048
     Dates: start: 20140828, end: 20140829
  25. NISSEKI POLYGLOBIN-N [Concomitant]
     Active Substance: HUMAN IMMUNOGLOBULIN G
     Indication: IMMUNE THROMBOCYTOPENIC PURPURA
     Dosage: 25 G, UNK
     Route: 042
     Dates: start: 20140829, end: 20140902
  26. ROMIPLOSTIM [Suspect]
     Active Substance: ROMIPLOSTIM
     Dosage: 3 MUG/KG, QWK
     Route: 058
     Dates: start: 20130905, end: 20131031
  27. ROMIPLOSTIM [Suspect]
     Active Substance: ROMIPLOSTIM
     Dosage: 5 MUG/KG, QD
     Route: 058
     Dates: start: 20140123, end: 20140123
  28. ROMIPLOSTIM [Suspect]
     Active Substance: ROMIPLOSTIM
     Dosage: 4 MUG/KG, QD
     Route: 058
     Dates: start: 20140130, end: 20140130
  29. PREDONINE [Concomitant]
     Active Substance: PREDNISOLONE
     Dosage: 17.5 MG, UNK
     Route: 048
     Dates: start: 20130920, end: 20131011
  30. DECADRON [Concomitant]
     Active Substance: DEXAMETHASONE
     Indication: IMMUNE THROMBOCYTOPENIC PURPURA
     Dosage: 20 MG, UNK
     Route: 048
     Dates: start: 20140926, end: 20140929
  31. OMEPRAZOLE. [Concomitant]
     Active Substance: OMEPRAZOLE
     Indication: PROPHYLAXIS
     Dosage: UNK
     Route: 048
  32. ROMIPLOSTIM [Suspect]
     Active Substance: ROMIPLOSTIM
     Dosage: 2 MUG/KG, QWK
     Route: 058
     Dates: start: 20130704, end: 20130801
  33. PREDONINE [Concomitant]
     Active Substance: PREDNISOLONE
     Indication: IMMUNE THROMBOCYTOPENIC PURPURA
     Dosage: 30 MG, UNK
     Route: 048
     Dates: start: 20130530, end: 20140925
  34. PREDONINE [Concomitant]
     Active Substance: PREDNISOLONE
     Dosage: 30 MG, UNK
     Route: 048
     Dates: start: 20130530, end: 20130627
  35. PREDONINE [Concomitant]
     Active Substance: PREDNISOLONE
     Dosage: 20 MG, UNK
     Route: 048
     Dates: start: 20130906, end: 20130919
  36. BASEN [Concomitant]
     Active Substance: VOGLIBOSE
     Indication: DIABETES MELLITUS
     Dosage: UNK
     Route: 048
  37. ROMIPLOSTIM [Suspect]
     Active Substance: ROMIPLOSTIM
     Dosage: 5 MUG/KG, QWK
     Route: 058
     Dates: start: 20140206, end: 20140213
  38. ROMIPLOSTIM [Suspect]
     Active Substance: ROMIPLOSTIM
     Dosage: 9 MUG/KG, QWK
     Route: 058
     Dates: start: 20141120
  39. PREDONINE [Concomitant]
     Active Substance: PREDNISOLONE
     Dosage: 8 MG, UNK
     Route: 048
     Dates: start: 20140502, end: 20140827
  40. PREDNISOLONE. [Concomitant]
     Active Substance: PREDNISOLONE
     Indication: IMMUNE THROMBOCYTOPENIC PURPURA
     Dosage: 1 MG, UNK
     Route: 048
     Dates: start: 20131122
  41. DECADRON [Concomitant]
     Active Substance: DEXAMETHASONE
     Dosage: 4 MG, UNK
     Route: 048
     Dates: start: 20140930, end: 20141003
  42. ROMIPLOSTIM [Suspect]
     Active Substance: ROMIPLOSTIM
     Dosage: 6 MUG/KG, QWK
     Route: 058
     Dates: start: 20140109, end: 20140117
  43. ROMIPLOSTIM [Suspect]
     Active Substance: ROMIPLOSTIM
     Dosage: 6 MUG/KG, QD
     Route: 058
     Dates: start: 20140220, end: 20140220
  44. ROMIPLOSTIM [Suspect]
     Active Substance: ROMIPLOSTIM
     Dosage: 7 MUG/KG, QWK
     Route: 058
     Dates: start: 20140417, end: 20140424
  45. ROMIPLOSTIM [Suspect]
     Active Substance: ROMIPLOSTIM
     Dosage: 8 MUG/KG, QWK
     Route: 058
     Dates: start: 20140501, end: 20140508
  46. PREDONINE [Concomitant]
     Active Substance: PREDNISOLONE
     Dosage: 10 MG, UNK
     Route: 048
     Dates: start: 20131122, end: 20131212
  47. AMLODIPINE [Concomitant]
     Active Substance: AMLODIPINE BESYLATE
     Indication: HYPERTENSION
     Dosage: UNK
     Route: 048
  48. ROMIPLOSTIM [Suspect]
     Active Substance: ROMIPLOSTIM
     Indication: IMMUNE THROMBOCYTOPENIC PURPURA
     Dosage: 1 MUG/KG, QWK
     Route: 058
     Dates: start: 20130620, end: 20130627
  49. PREDONINE [Concomitant]
     Active Substance: PREDNISOLONE
     Dosage: 25 MG, UNK
     Route: 048
     Dates: start: 20130628, end: 20130718
  50. BENET [Concomitant]
     Active Substance: RISEDRONATE SODIUM
     Indication: PROPHYLAXIS
     Dosage: UNK
     Route: 048

REACTIONS (2)
  - Platelet count decreased [Recovered/Resolved]
  - Petechiae [Recovered/Resolved]

NARRATIVE: CASE EVENT DATE: 20140828
